FAERS Safety Report 7772922-5 (Version None)
Quarter: 2011Q3

REPORT INFORMATION
  Report Type: 
  Country: None (occurrence: None)
  Receive Date: 20110922
  Receipt Date: 20100813
  Transmission Date: 20111222
  Serious: No
  Sender: FDA-Public Use
  Company Number: US-ASTRAZENECA-2010SE38237

PATIENT
  Age: 62 Year
  Sex: Male
  Weight: 127 kg

DRUGS (6)
  1. XANAX [Concomitant]
     Indication: PANIC ATTACK
     Route: 048
  2. CYMBALTA [Concomitant]
     Indication: DEPRESSION
     Route: 048
  3. SEROQUEL XR [Suspect]
     Indication: IMPULSE-CONTROL DISORDER
     Route: 048
     Dates: start: 20090101
  4. PRAZOSIN HCL [Concomitant]
     Indication: HYPERTENSION
     Route: 048
  5. ZOLOFT [Concomitant]
     Indication: DEPRESSION
     Route: 048
  6. BUSPAR [Concomitant]
     Route: 048

REACTIONS (6)
  - MALAISE [None]
  - INSOMNIA [None]
  - SELF INJURIOUS BEHAVIOUR [None]
  - FATIGUE [None]
  - DRUG DOSE OMISSION [None]
  - TACHYCARDIA [None]
